FAERS Safety Report 8533555-6 (Version None)
Quarter: 2012Q2

REPORT INFORMATION
  Report Type: 
  Country: None (occurrence: None)
  Receive Date: 20120412
  Receipt Date: 20100723
  Transmission Date: 20120825
  Serious: Yes (Other)
  Sender: FDA-Public Use
  Company Number: PHHY2010US48543

PATIENT
  Age: 47 Year
  Sex: Male
  Weight: 109 kg

DRUGS (11)
  1. PRAVASTATIN [Concomitant]
  2. FUROSEMIDE [Concomitant]
  3. BEAZEPRIL (BENAZEPRIL) [Concomitant]
  4. ZOLOFT [Suspect]
     Dates: start: 20080101
  5. SEROQUEL [Suspect]
     Dosage: 200 MG, 1 X/DAY
     Dates: start: 20080101
  6. ZOLPIDEM [Concomitant]
  7. CLONAZEPAM [Concomitant]
  8. CLOZARIL (CLOZAPINE) UNKNOWN [Suspect]
     Dates: start: 20080101
  9. CHANTIX [Suspect]
     Indication: SMOKING CESSATION THERAPY
     Dosage: 0.5 MG, 1X/DAY, ORAL 0.5 MG, 2X/DAY, ORAL 1 MG, 2X/DAY, ORAL
     Route: 048
     Dates: start: 20100614, end: 20100601
  10. CHANTIX [Suspect]
     Indication: SMOKING CESSATION THERAPY
     Dosage: 0.5 MG, 1X/DAY, ORAL 0.5 MG, 2X/DAY, ORAL 1 MG, 2X/DAY, ORAL
     Route: 048
     Dates: start: 20100601, end: 20100601
  11. CHANTIX [Suspect]
     Indication: SMOKING CESSATION THERAPY
     Dosage: 0.5 MG, 1X/DAY, ORAL 0.5 MG, 2X/DAY, ORAL 1 MG, 2X/DAY, ORAL
     Route: 048
     Dates: start: 20100601

REACTIONS (9)
  - VISUAL IMPAIRMENT [None]
  - BLOOD CHOLESTEROL INCREASED [None]
  - PARANOIA [None]
  - FEELING ABNORMAL [None]
  - ABNORMAL BEHAVIOUR [None]
  - GAIT DISTURBANCE [None]
  - IRRITABILITY [None]
  - DRUG INTERACTION [None]
  - ABNORMAL DREAMS [None]
